FAERS Safety Report 9408903 (Version 1)
Quarter: 2013Q3

REPORT INFORMATION
  Report Type: Spontaneous
  Country: SE (occurrence: SE)
  Receive Date: 20130719
  Receipt Date: 20130719
  Transmission Date: 20140515
  Serious: Yes (Other)
  Sender: FDA-Public Use
  Company Number: SE-RANBAXY-2013RR-71385

PATIENT
  Age: 66 Year
  Sex: Female

DRUGS (1)
  1. SIMVASTATIN [Suspect]
     Indication: PRODUCT USED FOR UNKNOWN INDICATION
     Dosage: UNK
     Route: 065

REACTIONS (21)
  - Hypersensitivity [Unknown]
  - Dyspnoea [Unknown]
  - Dysphagia [Unknown]
  - Nausea [Unknown]
  - Abdominal pain [Unknown]
  - Arthralgia [Unknown]
  - Myalgia [Unknown]
  - Tendonitis [Unknown]
  - Dizziness [Unknown]
  - Headache [Unknown]
  - Hyperacusis [Unknown]
  - Anxiety [Unknown]
  - Panic disorder [Unknown]
  - Depression [Unknown]
  - Sleep disorder [Unknown]
  - Nightmare [Unknown]
  - Aggression [Unknown]
  - Disturbance in attention [Unknown]
  - Amnesia [Unknown]
  - Retinal detachment [Unknown]
  - Photophobia [Unknown]
